FAERS Safety Report 13072828 (Version 3)
Quarter: 2019Q4

REPORT INFORMATION
  Report Type: Spontaneous
  Country: US (occurrence: US)
  Receive Date: 20161229
  Receipt Date: 20191105
  Transmission Date: 20200122
  Serious: Yes (Other)
  Sender: FDA-Public Use
  Company Number: US-SA-2016SA126646

PATIENT
  Age: 59 Year
  Sex: Female
  Weight: 62.6 kg

DRUGS (7)
  1. ADRIAMYCIN [Concomitant]
     Active Substance: DOXORUBICIN HYDROCHLORIDE
     Dosage: 76 MG,UNK
     Route: 065
     Dates: start: 20110506, end: 20110506
  2. CYTOXAN [Concomitant]
     Active Substance: CYCLOPHOSPHAMIDE
     Dosage: 76 MG,UNK
     Route: 065
     Dates: start: 20110506, end: 20110506
  3. NEOSAR [Concomitant]
     Active Substance: CYCLOPHOSPHAMIDE
     Indication: BREAST CANCER FEMALE
     Dosage: UNK
     Route: 065
  4. DOCETAXEL. [Suspect]
     Active Substance: DOCETAXEL
     Indication: BREAST CANCER FEMALE
     Dosage: 114 MG,Q3W
     Route: 042
     Dates: start: 20110211, end: 20110211
  5. CYTOXAN [Concomitant]
     Active Substance: CYCLOPHOSPHAMIDE
     Indication: BREAST CANCER FEMALE
     Dosage: 76 MG,UNK
     Route: 065
     Dates: start: 20110211, end: 20110211
  6. DOCETAXEL. [Suspect]
     Active Substance: DOCETAXEL
     Dosage: 114 MG,Q3W
     Route: 042
     Dates: start: 20110506, end: 20110506
  7. ADRIAMYCIN [Concomitant]
     Active Substance: DOXORUBICIN HYDROCHLORIDE
     Indication: BREAST CANCER FEMALE
     Dosage: 76 MG,UNK
     Route: 065
     Dates: start: 20110211, end: 20110211

REACTIONS (1)
  - Alopecia [Recovering/Resolving]

NARRATIVE: CASE EVENT DATE: 20120101
